FAERS Safety Report 15782790 (Version 1)
Quarter: 2019Q1

REPORT INFORMATION
  Report Type: Spontaneous
  Country: FR (occurrence: FR)
  Receive Date: 20190102
  Receipt Date: 20190102
  Transmission Date: 20190417
  Serious: Yes (Other)
  Sender: FDA-Public Use
  Company Number: FR-PFIZER INC-2018533156

PATIENT
  Age: 16 Year
  Sex: Male

DRUGS (6)
  1. CLINDAMYCINE [CLINDAMYCIN HYDROCHLORIDE] [Concomitant]
     Dosage: 4 DF, 1X/DAY
     Route: 048
     Dates: start: 20181112
  2. ACUPAN [Concomitant]
     Active Substance: NEFOPAM HYDROCHLORIDE
     Dosage: 120 MG, 1X/DAY
     Route: 042
  3. MORPHINE [Concomitant]
     Active Substance: MORPHINE
     Dosage: 10 MG, 1X/DAY
     Route: 058
     Dates: start: 20181104
  4. LYRICA [Suspect]
     Active Substance: PREGABALIN
     Indication: NEURALGIA
     Dosage: 2 DF, 1X/DAY
     Route: 048
     Dates: start: 20181113, end: 20181121
  5. TRANXENE [Concomitant]
     Active Substance: CLORAZEPATE DIPOTASSIUM
     Dosage: 2 DF, 1X/DAY
     Route: 048
     Dates: start: 20180926
  6. LOVENOX [Concomitant]
     Active Substance: ENOXAPARIN SODIUM
     Dosage: 1.6 ML, 1X/DAY
     Route: 058
     Dates: start: 20180917

REACTIONS (3)
  - Dermatitis bullous [Recovering/Resolving]
  - Product use issue [Recovered/Resolved]
  - Neutropenia [Recovering/Resolving]

NARRATIVE: CASE EVENT DATE: 20181113
